FAERS Safety Report 16145659 (Version 1)
Quarter: 2019Q2

REPORT INFORMATION
  Report Type: Spontaneous
  Country: US (occurrence: US)
  Receive Date: 20190227
  Receipt Date: 20190227
  Transmission Date: 20190711
  Serious: No
  Sender: FDA-Public Use
  Company Number: None

PATIENT
  Age: 54 Year
  Sex: Female

DRUGS (1)
  1. TEMOZOLOMIDE 250MG CAP [Suspect]
     Active Substance: TEMOZOLOMIDE
     Dates: start: 201809

REACTIONS (3)
  - Brain oedema [None]
  - Nuclear magnetic resonance imaging brain abnormal [None]
  - Pyrexia [None]

NARRATIVE: CASE EVENT DATE: 20190130
